FAERS Safety Report 14170509 (Version 2)
Quarter: 2018Q1

REPORT INFORMATION
  Report Type: Spontaneous
  Country: US (occurrence: US)
  Receive Date: 20171108
  Receipt Date: 20180102
  Transmission Date: 20180508
  Serious: No
  Sender: FDA-Public Use
  Company Number: US-LUNDBECK-DKLU2039516

PATIENT
  Sex: Female

DRUGS (5)
  1. VITAMIN B12 [Suspect]
     Active Substance: CYANOCOBALAMIN
  2. VITAMIN B12 [Suspect]
     Active Substance: CYANOCOBALAMIN
     Indication: VITAMIN B12 DECREASED
  3. NORTHERA [Suspect]
     Active Substance: DROXIDOPA
     Indication: ORTHOSTATIC HYPOTENSION
     Route: 048
     Dates: start: 201705
  4. NORTHERA [Suspect]
     Active Substance: DROXIDOPA
     Route: 048
  5. NORTHERA [Suspect]
     Active Substance: DROXIDOPA
     Route: 048

REACTIONS (8)
  - Vitamin B12 decreased [Unknown]
  - Feeling abnormal [Unknown]
  - Tremor [Unknown]
  - Depressed mood [Unknown]
  - Dizziness [Unknown]
  - Blood iron decreased [Unknown]
  - Confusional state [Unknown]
  - Agitation [Unknown]
